FAERS Safety Report 4569585-9 (Version None)
Quarter: 2005Q1

REPORT INFORMATION
  Report Type: 
  Country: None (occurrence: None)
  Receive Date: 20050201
  Receipt Date: 20050113
  Transmission Date: 20050727
  Serious: Yes (Other)
  Sender: FDA-Public Use
  Company Number: 200510206GDS

PATIENT
  Age: 75 Year
  Sex: Female
  Weight: 60 kg

DRUGS (1)
  1. ACTIMAX (MOXIFLOXACIN) [Suspect]
     Indication: BRONCHITIS
     Dosage: 400 MG TOTAL DAILY ORAL
     Route: 048
     Dates: start: 20041214, end: 20041219

REACTIONS (1)
  - DIARRHOEA HAEMORRHAGIC [None]
